FAERS Safety Report 12718160 (Version 1)
Quarter: 2016Q3

REPORT INFORMATION
  Report Type: Report from Study
  Country: US (occurrence: US)
  Receive Date: 20160906
  Receipt Date: 20160906
  Transmission Date: 20161109
  Serious: Yes (Hospitalization, Other)
  Sender: FDA-Public Use
  Company Number: US-BAYER-2016-040081

PATIENT
  Age: 61 Year
  Sex: Female
  Weight: 80.73 kg

DRUGS (25)
  1. TREPROSTINIL [Concomitant]
     Active Substance: TREPROSTINIL
     Indication: PULMONARY ARTERIAL HYPERTENSION
     Dosage: UNK
     Route: 048
  2. TREPROSTINIL [Concomitant]
     Active Substance: TREPROSTINIL
     Indication: PULMONARY ARTERIAL HYPERTENSION
     Dosage: 4.5 MG, TID
     Route: 048
  3. TREPROSTINIL [Concomitant]
     Active Substance: TREPROSTINIL
     Indication: PULMONARY ARTERIAL HYPERTENSION
     Dosage: 4.5 MG, TID
     Route: 048
  4. COUMADIN [Concomitant]
     Active Substance: WARFARIN SODIUM
  5. TREPROSTINIL [Concomitant]
     Active Substance: TREPROSTINIL
     Indication: PULMONARY ARTERIAL HYPERTENSION
     Dosage: 2.75 MG, TID
     Route: 048
  6. AMLODIPINE [Concomitant]
     Active Substance: AMLODIPINE BESYLATE
  7. TREPROSTINIL [Concomitant]
     Active Substance: TREPROSTINIL
     Indication: PULMONARY ARTERIAL HYPERTENSION
     Dosage: 3.25 MG, TID
     Route: 048
  8. AMITRIPTYLINE [Concomitant]
     Active Substance: AMITRIPTYLINE
  9. PREDNISONE. [Concomitant]
     Active Substance: PREDNISONE
  10. TORASEMIDE [Concomitant]
     Active Substance: TORSEMIDE
  11. ADEMPAS [Suspect]
     Active Substance: RIOCIGUAT
     Indication: PULMONARY ARTERIAL HYPERTENSION
     Dosage: 1 MG, TID
     Route: 048
  12. OPSUMIT [Concomitant]
     Active Substance: MACITENTAN
  13. ALLOPURINOL. [Concomitant]
     Active Substance: ALLOPURINOL
  14. ADEMPAS [Suspect]
     Active Substance: RIOCIGUAT
     Indication: PULMONARY ARTERIAL HYPERTENSION
     Dosage: 0.5 MG, TID
     Route: 048
  15. TREPROSTINIL [Concomitant]
     Active Substance: TREPROSTINIL
     Indication: PULMONARY ARTERIAL HYPERTENSION
     Dosage: 3.5 MG, TID
     Route: 048
     Dates: start: 20151214
  16. TREPROSTINIL [Concomitant]
     Active Substance: TREPROSTINIL
     Indication: PULMONARY ARTERIAL HYPERTENSION
     Dosage: UNK
     Route: 048
  17. TREPROSTINIL [Concomitant]
     Active Substance: TREPROSTINIL
     Indication: PULMONARY ARTERIAL HYPERTENSION
     Dosage: UNK
     Route: 048
  18. DILTIAZEM. [Concomitant]
     Active Substance: DILTIAZEM
     Dosage: UNK
  19. WARFARIN [Concomitant]
     Active Substance: WARFARIN
  20. ZOFRAN [Concomitant]
     Active Substance: ONDANSETRON HYDROCHLORIDE
  21. VANCOMYCIN [Concomitant]
     Active Substance: VANCOMYCIN
     Dosage: UNK
     Dates: start: 2016
  22. OXYGEN. [Concomitant]
     Active Substance: OXYGEN
  23. ADEMPAS [Suspect]
     Active Substance: RIOCIGUAT
     Indication: PULMONARY ARTERIAL HYPERTENSION
     Dosage: UNK
     Dates: start: 20160211
  24. REVATIO [Concomitant]
     Active Substance: SILDENAFIL CITRATE
  25. TRICOR [Concomitant]
     Active Substance: FENOFIBRATE

REACTIONS (29)
  - Fluid retention [Recovering/Resolving]
  - Abdominal discomfort [Unknown]
  - Constipation [Unknown]
  - Temperature intolerance [Unknown]
  - Early satiety [None]
  - Right ventricular failure [Unknown]
  - Dyspnoea [Not Recovered/Not Resolved]
  - Clostridium test positive [None]
  - Walking aid user [None]
  - Oedema peripheral [None]
  - Dyspnoea exertional [None]
  - Abnormal weight gain [Recovering/Resolving]
  - Nausea [Unknown]
  - Malaise [Unknown]
  - Hyperphagia [None]
  - Infected skin ulcer [None]
  - Cardiogenic shock [None]
  - Abdominal distension [Unknown]
  - Feeling cold [Unknown]
  - Vomiting [Recovered/Resolved]
  - Fluid overload [Unknown]
  - Tachycardia [None]
  - Diarrhoea [None]
  - Right ventricular failure [None]
  - Malaise [Recovered/Resolved]
  - Decreased appetite [None]
  - Nausea [Not Recovered/Not Resolved]
  - Peripheral swelling [Unknown]
  - Chills [None]

NARRATIVE: CASE EVENT DATE: 2016
